FAERS Safety Report 18916032 (Version 3)
Quarter: 2021Q2

REPORT INFORMATION
  Report Type: Spontaneous
  Country: CA (occurrence: CA)
  Receive Date: 20210219
  Receipt Date: 20210403
  Transmission Date: 20210717
  Serious: No
  Sender: FDA-Public Use
  Company Number: CA-B.I. PHARMACEUTICALS,INC./RIDGEFIELD-2021-BI-081725

PATIENT
  Age: 72 Year
  Sex: Male

DRUGS (1)
  1. JARDIANCE [Suspect]
     Active Substance: EMPAGLIFLOZIN
     Indication: DIABETES MELLITUS
     Dosage: 10 MG OD
     Route: 048
     Dates: start: 20210121

REACTIONS (4)
  - Urine odour abnormal [Recovered/Resolved]
  - Acidosis [Recovered/Resolved]
  - Breath odour [Recovered/Resolved]
  - Skin odour abnormal [Recovered/Resolved]
